FAERS Safety Report 7501724-X (Version None)
Quarter: 2011Q2

REPORT INFORMATION
  Report Type: 
  Country: None (occurrence: None)
  Receive Date: 20110525
  Receipt Date: 20110516
  Transmission Date: 20111010
  Serious: Yes (Hospitalization)
  Sender: FDA-Public Use
  Company Number: US-BIOGENIDEC-2010BI004785

PATIENT
  Age: 65 Year
  Sex: Female

DRUGS (1)
  1. AVONEX [Suspect]
     Indication: MULTIPLE SCLEROSIS
     Route: 030
     Dates: start: 20060627

REACTIONS (8)
  - JOINT DISLOCATION [None]
  - INFECTED BITES [None]
  - SKIN GRAFT [None]
  - COMPARTMENT SYNDROME [None]
  - FALL [None]
  - ARTERIAL INJURY [None]
  - NERVE INJURY [None]
  - BONE DISORDER [None]
